FAERS Safety Report 4339248-3 (Version None)
Quarter: 2004Q2

REPORT INFORMATION
  Report Type: 
  Country: None (occurrence: None)
  Receive Date: 20040414
  Receipt Date: 20040414
  Transmission Date: 20050107
  Serious: Yes (Other)
  Sender: FDA-Public Use
  Company Number: None

PATIENT
  Sex: Male
  Weight: 14.9687 kg

DRUGS (1)
  1. GENERIC LICE SHAMPOO [Suspect]
     Dosage: AS DIRECTED BY EACH PERSON
     Dates: start: 20031126, end: 20031206

REACTIONS (2)
  - ALOPECIA [None]
  - HAIR TEXTURE ABNORMAL [None]
